FAERS Safety Report 24806344 (Version 1)
Quarter: 2025Q1

REPORT INFORMATION
  Report Type: Spontaneous
  Country: US (occurrence: US)
  Receive Date: 20250103
  Receipt Date: 20250103
  Transmission Date: 20250408
  Serious: No
  Sender: GENMAB
  Company Number: US-GENMAB-2024-04309

PATIENT

DRUGS (1)
  1. EPCORITAMAB [Suspect]
     Active Substance: EPCORITAMAB
     Route: 065

REACTIONS (2)
  - Bronchitis [Unknown]
  - Rhinovirus infection [Unknown]
